FAERS Safety Report 7050396-X (Version None)
Quarter: 2010Q4

REPORT INFORMATION
  Report Type: 
  Country: None (occurrence: None)
  Receive Date: 20101018
  Receipt Date: 20101005
  Transmission Date: 20110411
  Serious: Yes (Other)
  Sender: FDA-Public Use
  Company Number: BR-ABBOTT-10P-020-0676052-00

PATIENT
  Sex: Female
  Weight: 61 kg

DRUGS (6)
  1. HUMIRA [Suspect]
     Indication: RHEUMATOID ARTHRITIS
     Route: 058
  2. APROVEL [Concomitant]
     Indication: BLOOD PRESSURE
     Route: 048
     Dates: start: 20080101
  3. METICORTEN [Concomitant]
     Indication: ARTHRITIS
     Dosage: FREQUENCY: 0.2
     Route: 048
     Dates: start: 19830101
  4. INDIAN NUT 150MG/ GINKGO BILOBA 150MG [Concomitant]
     Indication: VARICOSE VEIN
     Route: 048
     Dates: start: 20100401
  5. CALCIUM D [Concomitant]
     Indication: MINERAL SUPPLEMENTATION
     Route: 048
     Dates: start: 19970101
  6. GELATIN [Concomitant]
     Indication: MUSCLE DISORDER
     Route: 048
     Dates: start: 20090101

REACTIONS (14)
  - ANXIETY [None]
  - CLAVICLE FRACTURE [None]
  - DEPRESSION [None]
  - ERYTHEMA [None]
  - LIP DISORDER [None]
  - MUSCLE SPASMS [None]
  - NERVOUSNESS [None]
  - PARAESTHESIA ORAL [None]
  - PRURITUS [None]
  - ROAD TRAFFIC ACCIDENT [None]
  - SWELLING [None]
  - TACHYCARDIA [None]
  - URTICARIA [None]
  - WEIGHT DECREASED [None]
